FAERS Safety Report 4976700-1 (Version None)
Quarter: 2006Q2

REPORT INFORMATION
  Report Type: 
  Country: None (occurrence: None)
  Receive Date: 20060419
  Receipt Date: 20060106
  Transmission Date: 20061013
  Serious: Yes (Hospitalization, Disabling)
  Sender: FDA-Public Use
  Company Number: US-MERCK-0601USA00704

PATIENT
  Age: 53 Year
  Sex: Male
  Weight: 95 kg

DRUGS (1)
  1. VIOXX [Suspect]
     Indication: ARTHRITIS
     Route: 048
     Dates: start: 20030301, end: 20040910

REACTIONS (3)
  - CORONARY ARTERY OCCLUSION [None]
  - HYPERTENSION [None]
  - MYOCARDIAL INFARCTION [None]
